FAERS Safety Report 16176859 (Version 1)
Quarter: 2019Q2

REPORT INFORMATION
  Report Type: Report from Study
  Country: US (occurrence: US)
  Receive Date: 20190409
  Receipt Date: 20190409
  Transmission Date: 20190711
  Serious: Yes (Hospitalization, Other)
  Sender: FDA-Public Use
  Company Number: US-GILEAD-2019-0400965

PATIENT
  Age: 34 Year
  Sex: Female

DRUGS (17)
  1. CALCIUM CARBASPIRIN [Concomitant]
  2. LANTUS [Concomitant]
     Active Substance: INSULIN GLARGINE
  3. TOBRAMYCIN. [Concomitant]
     Active Substance: TOBRAMYCIN
  4. FERREX [Concomitant]
     Active Substance: FERRIC POLYSACCHARIDE COMPLEX
  5. ALBUTEROL HFA [Concomitant]
     Active Substance: ALBUTEROL SULFATE
  6. LEVOTHYROXIN [Concomitant]
     Active Substance: LEVOTHYROXINE
  7. MEPHYTON [Concomitant]
     Active Substance: PHYTONADIONE
  8. METOCLOPRAM [Concomitant]
     Active Substance: METOCLOPRAMIDE
  9. AZTREONAM LYSINE [Suspect]
     Active Substance: AZTREONAM LYSINE
     Indication: CYSTIC FIBROSIS LUNG
     Dosage: 75 MG, TID
     Route: 055
     Dates: start: 20131107
  10. BUPROPION. [Concomitant]
     Active Substance: BUPROPION
  11. MULTIVITAMIN (16) [Concomitant]
     Active Substance: VITAMINS
  12. NASONEX [Concomitant]
     Active Substance: MOMETASONE FUROATE
  13. AZITHROMYCIN ANHYDROUS. [Concomitant]
     Active Substance: AZITHROMYCIN ANHYDROUS
  14. HYDROXYZINE [Concomitant]
     Active Substance: HYDROXYZINE HYDROCHLORIDE
  15. OMEPRAZOLE. [Concomitant]
     Active Substance: OMEPRAZOLE
  16. RANITIDINE. [Concomitant]
     Active Substance: RANITIDINE
  17. PULMOZYME [Concomitant]
     Active Substance: DORNASE ALFA

REACTIONS (2)
  - Intentional product use issue [Unknown]
  - Cystic fibrosis [Unknown]
